FAERS Safety Report 13590511 (Version 1)
Quarter: 2017Q2

REPORT INFORMATION
  Report Type: Report from Study
  Country: JP (occurrence: JP)
  Receive Date: 20170529
  Receipt Date: 20170529
  Transmission Date: 20170830
  Serious: Yes (Hospitalization, Other)
  Sender: FDA-Public Use
  Company Number: JP-002147023-PHHY2012JP024748

PATIENT

DRUGS (23)
  1. RASILEZ [Suspect]
     Active Substance: ALISKIREN
     Dosage: 150 MG, QD
     Route: 048
     Dates: start: 20100917, end: 20110125
  2. NORVASC [Concomitant]
     Active Substance: AMLODIPINE BESYLATE
     Indication: HYPERTENSION
     Dosage: 2.5 MG, UNK
     Route: 048
     Dates: start: 20101019, end: 20101104
  3. CORINAEL [Concomitant]
     Active Substance: NIFEDIPINE
     Indication: HYPERTENSION
     Dosage: 40 MG, UNK
     Route: 048
     Dates: start: 20110113, end: 20110620
  4. SPIRONOLACTONE. [Concomitant]
     Active Substance: SPIRONOLACTONE
     Indication: PRODUCT USED FOR UNKNOWN INDICATION
     Dosage: 1 DF, UNK
     Route: 048
     Dates: start: 20101216, end: 20110406
  5. BLOPRESS [Concomitant]
     Active Substance: CANDESARTAN CILEXETIL
     Indication: HYPERTENSION
     Dosage: 4 MG, UNK
     Route: 048
     Dates: start: 20100512
  6. RASILEZ [Suspect]
     Active Substance: ALISKIREN
     Indication: HYPERTENSION
     Dosage: 150 MG, QD
     Route: 048
     Dates: start: 20100330, end: 20100804
  7. BLOPRESS [Concomitant]
     Active Substance: CANDESARTAN CILEXETIL
     Dosage: 8 MG, UNK
     Route: 048
  8. BLOPRESS [Concomitant]
     Active Substance: CANDESARTAN CILEXETIL
     Dosage: 4 MG, UNK
     Route: 048
  9. ALLORINE [Concomitant]
     Indication: PRODUCT USED FOR UNKNOWN INDICATION
     Dosage: 1 DF, UNK
     Route: 048
     Dates: start: 20100330
  10. RASILEZ [Suspect]
     Active Substance: ALISKIREN
     Dosage: 75 MG, QD
     Route: 048
     Dates: start: 20100823, end: 20100916
  11. RASILEZ [Suspect]
     Active Substance: ALISKIREN
     Dosage: 75 MG, QD
     Route: 048
     Dates: start: 20100823, end: 20100916
  12. DIART [Suspect]
     Active Substance: AZOSEMIDE
     Dosage: 30 MG, UNK
     Route: 048
     Dates: start: 20101118
  13. CALSLOT                            /01051302/ [Concomitant]
     Indication: HYPERTENSION
     Dosage: 20 MG, UNK
     Route: 048
     Dates: start: 20101118, end: 20110112
  14. RENIVEZE [Concomitant]
     Active Substance: ENALAPRIL MALEATE
     Indication: HYPERTENSION
     Dosage: 5 MG, UNK
     Route: 048
     Dates: start: 20101002, end: 20101018
  15. URIEF [Concomitant]
     Active Substance: SILODOSIN
     Indication: PRODUCT USED FOR UNKNOWN INDICATION
     Dosage: 8 MG, UNK
     Route: 048
     Dates: start: 20100213
  16. RASILEZ [Suspect]
     Active Substance: ALISKIREN
     Dosage: 150 MG, QD
     Route: 048
     Dates: start: 20100917, end: 20110125
  17. RASILEZ [Suspect]
     Active Substance: ALISKIREN
     Dosage: 150 MG, QD
     Route: 048
     Dates: start: 20100330, end: 20100804
  18. DIART [Suspect]
     Active Substance: AZOSEMIDE
     Indication: PRODUCT USED FOR UNKNOWN INDICATION
     Dosage: 30 MG, QD
     Route: 048
     Dates: end: 20100709
  19. BLOPRESS [Concomitant]
     Active Substance: CANDESARTAN CILEXETIL
     Dosage: 4 MG, UNK
     Route: 048
  20. UNISIA [Concomitant]
     Active Substance: AMLODIPINE BESYLATE\CANDESARTAN CILEXETIL
     Indication: HYPERTENSION
     Dosage: 1 DF, UNK
     Route: 048
     Dates: start: 20101105, end: 20101117
  21. CO-DIOVAN [Concomitant]
     Active Substance: HYDROCHLOROTHIAZIDE\VALSARTAN
     Indication: HYPERTENSION
     Dosage: 1 DF, UNK
     Route: 048
     Dates: start: 20100213, end: 20100329
  22. BLOPRESS [Concomitant]
     Active Substance: CANDESARTAN CILEXETIL
     Dosage: 4 MG, UNK
     Route: 048
  23. MICARDIS [Concomitant]
     Active Substance: TELMISARTAN
     Indication: PRODUCT USED FOR UNKNOWN INDICATION
     Dosage: 20 MG, UNK
     Route: 048
     Dates: start: 20110721, end: 20110804

REACTIONS (6)
  - Heat illness [Recovered/Resolved]
  - Blood pressure decreased [Recovering/Resolving]
  - Eyelid oedema [Recovering/Resolving]
  - Pollakiuria [Recovered/Resolved]
  - Blood pressure increased [Unknown]
  - Blood pressure decreased [Recovered/Resolved]

NARRATIVE: CASE EVENT DATE: 20100723
